FAERS Safety Report 18157612 (Version 1)
Quarter: 2020Q3

REPORT INFORMATION
  Report Type: Spontaneous
  Country: SE (occurrence: SE)
  Receive Date: 20200817
  Receipt Date: 20200817
  Transmission Date: 20201103
  Serious: Yes (Other)
  Sender: FDA-Public Use
  Company Number: SE-TEVA-2020-SE-1814065

PATIENT
  Age: 42 Year
  Sex: Female
  Weight: 98 kg

DRUGS (7)
  1. VOXRA [Concomitant]
     Active Substance: BUPROPION HYDROCHLORIDE
     Dates: start: 2014
  2. OMEPRAZOLE. [Concomitant]
     Active Substance: OMEPRAZOLE
     Dates: start: 2012
  3. PREDNISOLONE. [Suspect]
     Active Substance: PREDNISOLONE
     Indication: PRODUCT USED FOR UNKNOWN INDICATION
     Dosage: 5?10 MG TABLET. STARTING AT 30 MG AND THEN TAPERING.
     Dates: start: 202003
  4. QUETIAPINE FUMARATE. [Concomitant]
     Active Substance: QUETIAPINE FUMARATE
     Dates: start: 2019
  5. CYMBALTA [Concomitant]
     Active Substance: DULOXETINE HYDROCHLORIDE
     Dates: start: 2014
  6. ALVEDON [Concomitant]
     Active Substance: ACETAMINOPHEN
     Dates: start: 2012
  7. FOLIC ACID, ANHYDROUS [Concomitant]
     Active Substance: FOLIC ACID
     Dates: start: 2014

REACTIONS (6)
  - Inflammation of wound [Not Recovered/Not Resolved]
  - Headache [Not Recovered/Not Resolved]
  - Skin fragility [Not Recovered/Not Resolved]
  - Impaired healing [Not Recovered/Not Resolved]
  - Palpitations [Not Recovered/Not Resolved]
  - Hyperhidrosis [Not Recovered/Not Resolved]

NARRATIVE: CASE EVENT DATE: 202003
